FAERS Safety Report 24947433 (Version 2)
Quarter: 2025Q2

REPORT INFORMATION
  Report Type: Spontaneous
  Country: US (occurrence: US)
  Receive Date: 20250210
  Receipt Date: 20250410
  Transmission Date: 20250716
  Serious: Yes (Other)
  Sender: NOVEN
  Company Number: US-NOVEN PHARMACEUTICALS, INC.-2025-NOV-US000337

PATIENT
  Sex: Female

DRUGS (3)
  1. MINIVELLE [Suspect]
     Active Substance: ESTRADIOL
     Indication: Endometriosis
     Route: 062
  2. MINIVELLE [Suspect]
     Active Substance: ESTRADIOL
     Indication: Ovarian cyst
  3. MINIVELLE [Suspect]
     Active Substance: ESTRADIOL
     Indication: Off label use

REACTIONS (2)
  - Ovarian cyst [Unknown]
  - Off label use [Not Recovered/Not Resolved]
